FAERS Safety Report 9245188 (Version 1)
Quarter: 2013Q2

REPORT INFORMATION
  Report Type: Report from Study
  Country: BR (occurrence: BR)
  Receive Date: 20130422
  Receipt Date: 20130422
  Transmission Date: 20140414
  Serious: Yes (Other)
  Sender: FDA-Public Use
  Company Number: PHHY2013BR038049

PATIENT
  Sex: Female

DRUGS (1)
  1. DIOVAN HCT [Suspect]
     Indication: CARDIAC DISORDER
     Dosage: 1 DF (160MG VALS/12.5MG HCTZ), DAILY

REACTIONS (1)
  - Monoplegia [Not Recovered/Not Resolved]
